FAERS Safety Report 4381952-5 (Version None)
Quarter: 2004Q2

REPORT INFORMATION
  Report Type: 
  Country: None (occurrence: None)
  Receive Date: 20040615
  Receipt Date: 20040604
  Transmission Date: 20050107
  Serious: Yes (Other)
  Sender: FDA-Public Use
  Company Number: 2004218024DE

PATIENT
  Age: 74 Year
  Sex: Male

DRUGS (3)
  1. CAMPTOSAR [Suspect]
     Indication: RECTAL CANCER
     Dosage: 80 MG/M2, CYCLIC
     Dates: start: 20031127, end: 20031127
  2. FLUOROURACIL [Suspect]
     Indication: RECTAL CANCER
     Dosage: 2000 MG/M2, CYCLIC,
     Dates: start: 20031127, end: 20031127
  3. FOLINIC ACID (FOLINIC ACID) [Suspect]
     Indication: RECTAL CANCER
     Dosage: 500 MG/M2, CYCLIC,
     Dates: start: 20031127, end: 20031127

REACTIONS (5)
  - ANAEMIA [None]
  - ASTHENIA [None]
  - LEUKOPENIA [None]
  - NAUSEA [None]
  - NEUROTOXICITY [None]
